FAERS Safety Report 14776209 (Version 1)
Quarter: 2018Q2

REPORT INFORMATION
  Report Type: Spontaneous
  Country: DE (occurrence: DE)
  Receive Date: 20180418
  Receipt Date: 20180418
  Transmission Date: 20180711
  Serious: Yes (Other)
  Sender: FDA-Public Use
  Company Number: DE-TEVA-2018-DE-881258

PATIENT
  Age: 43 Year
  Sex: Male

DRUGS (3)
  1. DIPIDOLOR [Concomitant]
     Active Substance: PIRITRAMIDE
  2. ACTIQ [Suspect]
     Active Substance: FENTANYL CITRATE
     Indication: PAIN
     Dosage: TOOK THE DRUG FOR 1-2 YEARS
     Route: 048
  3. VALIUM [Concomitant]
     Active Substance: DIAZEPAM

REACTIONS (3)
  - Septal panniculitis [Unknown]
  - Tumour necrosis [Unknown]
  - Off label use [Unknown]
